FAERS Safety Report 9207563 (Version 2)
Quarter: 2014Q2

REPORT INFORMATION
  Report Type: Spontaneous
  Country: US (occurrence: US)
  Receive Date: 20130403
  Receipt Date: 20140404
  Transmission Date: 20141212
  Serious: Yes (Other)
  Sender: FDA-Public Use
  Company Number: US-BAYER-2013-039948

PATIENT
  Age: 26 Year
  Sex: Female

DRUGS (9)
  1. YASMIN [Suspect]
     Dosage: UNK
     Dates: start: 20090311
  2. OCELLA [Suspect]
     Dosage: UNK
     Dates: start: 20090311
  3. FLOVENT [Concomitant]
  4. ALBUTEROL [Concomitant]
  5. CLARITHROMYCIN [Concomitant]
  6. AMOXICILLIN [Concomitant]
  7. OMEPRAZOLE [Concomitant]
  8. FERROUS FUMARATE [Concomitant]
  9. METRONIDAZOLE [Concomitant]

REACTIONS (5)
  - Cholecystitis chronic [None]
  - Cholelithiasis [None]
  - Injury [None]
  - Pain [None]
  - Pain [None]
